FAERS Safety Report 6566870-6 (Version None)
Quarter: 2010Q1

REPORT INFORMATION
  Report Type: 
  Country: None (occurrence: None)
  Receive Date: 20100202
  Receipt Date: 20100118
  Transmission Date: 20100710
  Serious: Yes (Other)
  Sender: FDA-Public Use
  Company Number: B0629595A

PATIENT
  Age: 76 Year
  Sex: Female

DRUGS (6)
  1. CARVEDILOL [Suspect]
     Indication: CARDIAC DISORDER
     Dosage: 12.5MG PER DAY
     Route: 048
     Dates: start: 20090101
  2. EPOETIN BETA [Suspect]
     Indication: DRUG USE FOR UNKNOWN INDICATION
     Dosage: 4000IU PER DAY
     Route: 058
     Dates: start: 20090101
  3. SEGURIL [Suspect]
     Indication: HYPERTENSION
     Dosage: 40MG PER DAY
     Route: 048
  4. AMIODARONE HCL [Suspect]
     Indication: ARRHYTHMIA
     Route: 065
  5. ASPIRIN [Suspect]
     Indication: PROPHYLAXIS
     Dosage: 100MG PER DAY
     Route: 048
     Dates: start: 20090101
  6. ATORVASTATIN CALCIUM [Suspect]
     Indication: HYPERLIPIDAEMIA
     Dosage: 20MG PER DAY
     Route: 048
     Dates: start: 20080101

REACTIONS (1)
  - HEPATITIS ACUTE [None]
